FAERS Safety Report 8147512-5 (Version None)
Quarter: 2012Q1

REPORT INFORMATION
  Report Type: 
  Country: None (occurrence: None)
  Receive Date: 20120218
  Receipt Date: 20111115
  Transmission Date: 20120608
  Serious: No
  Sender: FDA-Public Use
  Company Number: US-ALLERGAN-1102485US

PATIENT
  Sex: Female

DRUGS (2)
  1. BOTULINUM TOXIN TYPE A [Suspect]
     Dosage: 100 UNITS, SINGLE
     Dates: start: 20110215, end: 20110215
  2. BOTULINUM TOXIN TYPE A [Suspect]
     Indication: HYPERHIDROSIS
     Dosage: 100 UNITS, SINGLE
     Dates: start: 20110128, end: 20110128

REACTIONS (4)
  - TREMOR [None]
  - HYPERHIDROSIS [None]
  - DRUG INEFFECTIVE [None]
  - NERVOUSNESS [None]
